FAERS Safety Report 17582116 (Version 1)
Quarter: 2020Q1

REPORT INFORMATION
  Report Type: Spontaneous
  Country: US (occurrence: US)
  Receive Date: 20200325
  Receipt Date: 20200325
  Transmission Date: 20200409
  Serious: Yes (Other)
  Sender: FDA-Public Use
  Company Number: NVSC2020US080853

PATIENT
  Age: 20 Month
  Sex: Female

DRUGS (1)
  1. PROMETHAZINE [Suspect]
     Active Substance: PROMETHAZINE HYDROCHLORIDE
     Indication: NAUSEA
     Dosage: UNK
     Route: 065

REACTIONS (4)
  - Extensor plantar response [Not Recovered/Not Resolved]
  - Walking disability [Unknown]
  - Dystonia [Not Recovered/Not Resolved]
  - Mental status changes [Not Recovered/Not Resolved]
